FAERS Safety Report 7631154-1 (Version None)
Quarter: 2011Q3

REPORT INFORMATION
  Report Type: 
  Country: None (occurrence: None)
  Receive Date: 20110725
  Receipt Date: 20110713
  Transmission Date: 20111222
  Serious: Yes (Hospitalization)
  Sender: FDA-Public Use
  Company Number: US-JNJFOC-20110706854

PATIENT
  Sex: Male
  Weight: 35.8 kg

DRUGS (4)
  1. REMICADE [Suspect]
     Indication: CROHN'S DISEASE
     Route: 042
     Dates: end: 20090709
  2. METHOTREXATE [Concomitant]
  3. HUMIRA [Concomitant]
     Dates: start: 20090730
  4. REMICADE [Suspect]
     Route: 042
     Dates: start: 20070112

REACTIONS (1)
  - CROHN'S DISEASE [None]
